FAERS Safety Report 20124110 (Version 1)
Quarter: 2021Q4

REPORT INFORMATION
  Report Type: Spontaneous
  Country: CA (occurrence: CA)
  Receive Date: 20211129
  Receipt Date: 20211129
  Transmission Date: 20220303
  Serious: Yes (Other)
  Sender: FDA-Public Use
  Company Number: CA-SA-SAC20211118001699

PATIENT
  Age: 49 Year
  Sex: Female
  Weight: 68 kg

DRUGS (23)
  1. HYDROXYCHLOROQUINE SULFATE [Suspect]
     Active Substance: HYDROXYCHLOROQUINE SULFATE
     Indication: Lip pruritus
     Dosage: 400 MG, QD (1 EVERY 1 DAY)
  2. ESOMEPRAZOLE MAGNESIUM [Suspect]
     Active Substance: ESOMEPRAZOLE MAGNESIUM
     Indication: Product used for unknown indication
  3. FOLIC ACID [Suspect]
     Active Substance: FOLIC ACID
     Indication: Product used for unknown indication
  4. LEFLUNOMIDE [Suspect]
     Active Substance: LEFLUNOMIDE
     Indication: Product used for unknown indication
     Dosage: UNK
     Route: 048
  5. GOLD SODIUM THIOMALATE [Suspect]
     Active Substance: GOLD SODIUM THIOMALATE
     Indication: Product used for unknown indication
     Route: 051
  6. ESOMEPRAZOLE SODIUM [Suspect]
     Active Substance: ESOMEPRAZOLE SODIUM
     Indication: Product used for unknown indication
  7. SULFASALAZINE [Suspect]
     Active Substance: SULFASALAZINE
     Indication: Product used for unknown indication
  8. THIAMINE HYDROCHLORIDE [Suspect]
     Active Substance: THIAMINE HYDROCHLORIDE
     Indication: Product used for unknown indication
  9. NICOTINAMIDE [Suspect]
     Active Substance: NIACINAMIDE
     Indication: Product used for unknown indication
  10. GOLD [Suspect]
     Active Substance: GOLD
     Indication: Product used for unknown indication
  11. XELJANZ [Suspect]
     Active Substance: TOFACITINIB CITRATE
     Indication: Rheumatoid arthritis
     Dosage: 5 MG, QD
     Route: 048
  12. ACTEMRA [Suspect]
     Active Substance: TOCILIZUMAB
     Indication: Rheumatoid arthritis
     Dosage: 162 MG, QW (1 EVERY 1 WEEK)
     Route: 058
  13. ADALIMUMAB [Suspect]
     Active Substance: ADALIMUMAB
     Indication: Rheumatoid arthritis
  14. AZATHIOPRINE [Suspect]
     Active Substance: AZATHIOPRINE
     Indication: Product used for unknown indication
  15. CYCLOSPORINE [Suspect]
     Active Substance: CYCLOSPORINE
     Indication: Rheumatoid arthritis
  16. ENBREL [Suspect]
     Active Substance: ETANERCEPT
     Indication: Rheumatoid arthritis
  17. DEXPANTHENOL [Concomitant]
     Active Substance: DEXPANTHENOL
  18. ERGOCALCIFEROL [Concomitant]
     Active Substance: ERGOCALCIFEROL
  19. ESOMEPRAZOLE [Concomitant]
     Active Substance: ESOMEPRAZOLE
  20. NEXIUM [Concomitant]
     Active Substance: ESOMEPRAZOLE MAGNESIUM
  21. RIBOFLAVIN [Concomitant]
     Active Substance: RIBOFLAVIN
  22. VITAMIN A [Concomitant]
     Active Substance: VITAMIN A
  23. VITAMIN C [Concomitant]
     Active Substance: ASCORBIC ACID

REACTIONS (9)
  - Breast cancer [Recovered/Resolved]
  - Condition aggravated [Recovered/Resolved]
  - Drug intolerance [Recovered/Resolved]
  - Hepatic cirrhosis [Recovered/Resolved]
  - Injection site reaction [Recovered/Resolved]
  - Neuropathy peripheral [Recovered/Resolved]
  - Nonalcoholic fatty liver disease [Recovered/Resolved]
  - Pruritus [Recovered/Resolved]
  - Treatment failure [Recovered/Resolved]
